FAERS Safety Report 13580922 (Version 3)
Quarter: 2018Q1

REPORT INFORMATION
  Report Type: Spontaneous
  Country: US (occurrence: US)
  Receive Date: 20170525
  Receipt Date: 20180308
  Transmission Date: 20180508
  Serious: No
  Sender: FDA-Public Use
  Company Number: US-PFIZER INC-2017225282

PATIENT
  Age: 15 Year
  Sex: Male

DRUGS (3)
  1. GENOTROPIN [Suspect]
     Active Substance: SOMATROPIN
     Dosage: UNK
  2. GENOTROPIN [Suspect]
     Active Substance: SOMATROPIN
     Dosage: 2.6 , DAILY
     Dates: start: 201704
  3. GENOTROPIN [Suspect]
     Active Substance: SOMATROPIN
     Indication: GROWTH HORMONE DEFICIENCY
     Dosage: 2.4 MG, UNK
     Dates: start: 20170405

REACTIONS (5)
  - Wrong technique in product usage process [Unknown]
  - Visual impairment [Recovered/Resolved]
  - Drug dose omission [Unknown]
  - Headache [Recovered/Resolved]
  - Injection site pain [Unknown]

NARRATIVE: CASE EVENT DATE: 20170517
